FAERS Safety Report 4611021-8 (Version None)
Quarter: 2005Q1

REPORT INFORMATION
  Report Type: 
  Country: None (occurrence: None)
  Receive Date: 20050316
  Receipt Date: 20050316
  Transmission Date: 20050727
  Serious: Yes (Other)
  Sender: FDA-Public Use
  Company Number: None

PATIENT
  Sex: Male
  Weight: 98.4 kg

DRUGS (9)
  1. ZITHROMAX [Suspect]
     Indication: LOBAR PNEUMONIA
     Dosage: 250 MG   DAILY   ORAL
     Route: 048
     Dates: start: 20050304, end: 20050308
  2. SINGULAIR [Concomitant]
  3. WARFARIN [Concomitant]
  4. DOCUSATE [Concomitant]
  5. RENAPHRO [Concomitant]
  6. NEPHROCAP [Concomitant]
  7. NEURONTIN [Concomitant]
  8. THALIDOMIDE [Concomitant]
  9. ARANESP [Concomitant]

REACTIONS (1)
  - ERYTHEMA MULTIFORME [None]
